FAERS Safety Report 8929748 (Version 4)
Quarter: 2013Q1

REPORT INFORMATION
  Report Type: Report from Study
  Country: US (occurrence: US)
  Receive Date: 20121128
  Receipt Date: 20130118
  Transmission Date: 20140127
  Serious: Yes (Other)
  Sender: FDA-Public Use
  Company Number: US-TEVA-372414USA

PATIENT
  Age: 22 Year
  Sex: Female

DRUGS (1)
  1. CLARAVIS [Suspect]
     Dosage: 40 MG AND 80 MG ALTERNATING EVERY OTHER DAY
     Dates: start: 20120706, end: 20121118

REACTIONS (1)
  - Unintended pregnancy [Unknown]
